FAERS Safety Report 9466526 (Version 1)
Quarter: 2013Q3

REPORT INFORMATION
  Report Type: Spontaneous
  Country: US (occurrence: US)
  Receive Date: 20130820
  Receipt Date: 20130820
  Transmission Date: 20140515
  Serious: Yes (Other)
  Sender: FDA-Public Use
  Company Number: US-BAXTER-2013BAX032316

PATIENT
  Age: 28 Year
  Sex: Female

DRUGS (12)
  1. GAMMAGARD LIQUID [Suspect]
     Indication: IMMUNE THROMBOCYTOPENIC PURPURA
     Route: 042
  2. GAMMAGARD LIQUID [Suspect]
     Indication: THROMBOCYTOPENIA
  3. GAMMAGARD LIQUID [Suspect]
     Indication: THROMBOCYTOSIS
  4. ROMIPLOSTIM [Suspect]
     Indication: IMMUNE THROMBOCYTOPENIC PURPURA
     Route: 042
  5. ROMIPLOSTIM [Suspect]
     Indication: THROMBOCYTOPENIA
  6. ROMIPLOSTIM [Suspect]
     Indication: THROMBOCYTOSIS
  7. DEXAMETHASONE [Suspect]
     Indication: IMMUNE THROMBOCYTOPENIC PURPURA
     Route: 042
  8. DEXAMETHASONE [Suspect]
     Indication: THROMBOCYTOPENIA
     Route: 065
  9. DEXAMETHASONE [Suspect]
     Indication: THROMBOCYTOSIS
  10. MISOPROSTOL [Concomitant]
     Indication: LABOUR INDUCTION
     Route: 065
  11. OXYTOCIN [Concomitant]
     Indication: LABOUR INDUCTION
     Route: 065
  12. HYDROCORTISONE [Concomitant]
     Indication: PRODUCT USED FOR UNKNOWN INDICATION
     Route: 042

REACTIONS (4)
  - Thrombocytopenia [Recovered/Resolved]
  - Thrombocytosis [Recovered/Resolved]
  - Premature delivery [Recovered/Resolved]
  - Exposure during pregnancy [Recovered/Resolved]
